FAERS Safety Report 15842488 (Version 1)
Quarter: 2019Q1

REPORT INFORMATION
  Report Type: Spontaneous
  Country: RO (occurrence: RO)
  Receive Date: 20190118
  Receipt Date: 20190118
  Transmission Date: 20190417
  Serious: Yes (Other)
  Sender: FDA-Public Use
  Company Number: RO-MYLANLABS-2019M1002789

PATIENT
  Age: 58 Year
  Sex: Female
  Weight: 60 kg

DRUGS (3)
  1. PREDNISOLONE. [Concomitant]
     Active Substance: PREDNISOLONE
     Indication: HYPERSENSITIVITY VASCULITIS
     Dosage: LATER, THE DOSE WAS DECREASED BY 5 MG EVERY THREE DAYS
     Route: 048
  2. ERLOTINIB [Suspect]
     Active Substance: ERLOTINIB
     Indication: METASTASES TO CENTRAL NERVOUS SYSTEM
     Dosage: 100 MILLIGRAM, QD
     Route: 065
  3. ERLOTINIB [Suspect]
     Active Substance: ERLOTINIB
     Indication: LUNG ADENOCARCINOMA
     Route: 065

REACTIONS (4)
  - Anaemia [Unknown]
  - Toxicity to various agents [Recovered/Resolved]
  - Hypersensitivity vasculitis [Recovered/Resolved]
  - Drug ineffective [Unknown]
